FAERS Safety Report 14633019 (Version 1)
Quarter: 2018Q1

REPORT INFORMATION
  Report Type: Spontaneous
  Country: IT (occurrence: IT)
  Receive Date: 20180313
  Receipt Date: 20180313
  Transmission Date: 20180509
  Serious: Yes (Other)
  Sender: FDA-Public Use
  Company Number: PHHY2018IT040375

PATIENT

DRUGS (6)
  1. PARACETAMOL [Concomitant]
     Active Substance: ACETAMINOPHEN
     Indication: PREMEDICATION
     Dosage: 15 MG/KG, UNK
     Route: 048
  2. PREDNISONE. [Concomitant]
     Active Substance: PREDNISONE
     Indication: PROPHYLAXIS
     Route: 065
  3. SALBUTAMOL [Concomitant]
     Active Substance: ALBUTEROL
     Indication: PREMEDICATION
     Dosage: 0.1 MG/KG, UNK
     Route: 065
  4. METHYLPREDNISOLONE. [Concomitant]
     Active Substance: METHYLPREDNISOLONE
     Indication: PREMEDICATION
     Dosage: 2 MG/KG, UNK
     Route: 042
  5. OFATUMUMAB [Suspect]
     Active Substance: OFATUMUMAB
     Indication: NEPHROTIC SYNDROME
     Dosage: 1500 MG, UNK
     Route: 041
  6. CETIRIZINE [Concomitant]
     Active Substance: CETIRIZINE HYDROCHLORIDE
     Indication: PREMEDICATION
     Dosage: 0.2 MG/KG, UNK
     Route: 048

REACTIONS (2)
  - Product use in unapproved indication [Unknown]
  - Traumatic lung injury [Unknown]
